FAERS Safety Report 5043910-7 (Version None)
Quarter: 2006Q3

REPORT INFORMATION
  Report Type: 
  Country: None (occurrence: None)
  Receive Date: 20060706
  Receipt Date: 20060627
  Transmission Date: 20061208
  Serious: Yes (Other)
  Sender: FDA-Public Use
  Company Number: PHMT2006CA01421

PATIENT

DRUGS (1)
  1. ZELNORM [Suspect]
     Dosage: 24 MG QD
     Route: 048

REACTIONS (1)
  - TRANSAMINASES INCREASED [None]
